FAERS Safety Report 8784099 (Version 2)
Quarter: 2012Q4

REPORT INFORMATION
  Report Type: 
  Country: IT (occurrence: IT)
  Receive Date: 20120913
  Receipt Date: 20120918
  Transmission Date: 20130627
  Serious: Yes (Death)
  Sender: FDA-Public Use
  Company Number: IT-BRISTOL-MYERS SQUIBB COMPANY-16930323

PATIENT
  Age: 88 Year
  Sex: Female

DRUGS (8)
  1. COUMADIN [Suspect]
     Indication: PROPHYLAXIS
     Route: 048
     Dates: start: 20120801, end: 20120820
  2. PANTOPRAZOLE [Concomitant]
     Dosage: Pantoprazolo Sodico
  3. LANOXIN [Concomitant]
  4. TRIATEC [Concomitant]
  5. LASIX [Concomitant]
  6. DOBETIN [Concomitant]
  7. TRITTICO [Concomitant]
  8. DAKTARIN [Concomitant]

REACTIONS (4)
  - Loss of consciousness [Fatal]
  - Rectal haemorrhage [Fatal]
  - Vaginal haemorrhage [Fatal]
  - International normalised ratio increased [None]
